FAERS Safety Report 19824251 (Version 1)
Quarter: 2021Q3

REPORT INFORMATION
  Report Type: Spontaneous
  Country: ES (occurrence: ES)
  Receive Date: 20210913
  Receipt Date: 20210913
  Transmission Date: 20211014
  Serious: Yes (Other)
  Sender: FDA-Public Use
  Company Number: ES-TEVA-2021-ES-1951156

PATIENT
  Age: 68 Year
  Sex: Male

DRUGS (1)
  1. SILDENAFILO TEVA 100 MG COMPRIMIDOS RECUBIERTOS CON PELICULA EFG [Suspect]
     Active Substance: SILDENAFIL CITRATE
     Dosage: 100 MG, 8 TABLETS 664634.2 FILM EFG
     Route: 048

REACTIONS (2)
  - Erectile dysfunction [Unknown]
  - Drug ineffective [Unknown]
